FAERS Safety Report 8828710 (Version 2)
Quarter: 2013Q2

REPORT INFORMATION
  Report Type: Report from Study
  Country: JP (occurrence: JP)
  Receive Date: 20121008
  Receipt Date: 20130502
  Transmission Date: 20140414
  Serious: Yes (Other)
  Sender: FDA-Public Use
  Company Number: JP-VERTEX PHARMACEUTICAL INC.-2012-022267

PATIENT
  Age: 75 Year
  Sex: Female

DRUGS (8)
  1. VX-950 (TELAPREVIR) [Suspect]
     Indication: CHRONIC HEPATITIS C
     Dosage: 1500 MG, QD
     Route: 048
     Dates: start: 20120628, end: 20120913
  2. RIBAVIRIN [Suspect]
     Indication: CHRONIC HEPATITIS C
     Dosage: 400 MG, QD
     Route: 048
     Dates: start: 20120628, end: 20120720
  3. RIBAVIRIN [Suspect]
     Dosage: 200 MG, QD
     Route: 048
     Dates: start: 20120721
  4. PEGINTERFERON ALFA-2B [Suspect]
     Indication: CHRONIC HEPATITIS C
     Dosage: 1.1 ?G/KG, QW
     Route: 058
     Dates: start: 20120628, end: 20120914
  5. MUCOSTA [Concomitant]
     Dosage: 300 MG, QD
     Route: 048
     Dates: start: 20120628, end: 20120701
  6. MUCOSTA [Concomitant]
     Dosage: 100 MG, PRN
     Route: 048
     Dates: start: 20120628
  7. LOXONIN [Concomitant]
     Dosage: 180 MG, QD
     Route: 048
     Dates: start: 20120628, end: 20120701
  8. LOXONIN [Concomitant]
     Dosage: 60 MG, PRN
     Route: 048
     Dates: start: 20120628

REACTIONS (1)
  - Retinal haemorrhage [Recovered/Resolved]
